FAERS Safety Report 7583414-0 (Version None)
Quarter: 2011Q2

REPORT INFORMATION
  Report Type: 
  Country: None (occurrence: None)
  Receive Date: 20110630
  Receipt Date: 20110627
  Transmission Date: 20111010
  Serious: No
  Sender: FDA-Public Use
  Company Number: US-TEVA-288423USA

PATIENT
  Sex: Female
  Weight: 113.5 kg

DRUGS (3)
  1. BENADRYL [Concomitant]
     Indication: HYPERSENSITIVITY
  2. IMPLANON [Concomitant]
     Indication: CONTRACEPTION
     Dates: start: 20110506
  3. PLAN B ONE-STEP [Suspect]
     Indication: POST COITAL CONTRACEPTION
     Dosage: 1.5 MILLIGRAM;
     Route: 048
     Dates: start: 20110622, end: 20110622

REACTIONS (1)
  - MENSTRUATION IRREGULAR [None]
